FAERS Safety Report 14004978 (Version 2)
Quarter: 2017Q4

REPORT INFORMATION
  Report Type: Report from Study
  Country: US (occurrence: US)
  Receive Date: 20170922
  Receipt Date: 20171017
  Transmission Date: 20180321
  Serious: Yes (Hospitalization, Other)
  Sender: FDA-Public Use
  Company Number: US-GILEAD-2017-0294671

PATIENT
  Age: 69 Year
  Sex: Female

DRUGS (8)
  1. SINGULAIR [Concomitant]
     Active Substance: MONTELUKAST SODIUM
  2. TIZANIDINE. [Concomitant]
     Active Substance: TIZANIDINE
  3. NEXIUM [Concomitant]
     Active Substance: ESOMEPRAZOLE MAGNESIUM
  4. CYMBALTA [Concomitant]
     Active Substance: DULOXETINE HYDROCHLORIDE
  5. LISINOPRIL. [Concomitant]
     Active Substance: LISINOPRIL
  6. AMBRISENTAN [Suspect]
     Active Substance: AMBRISENTAN
     Indication: PULMONARY ARTERIAL HYPERTENSION
     Dosage: 5 MG, QD
     Route: 065
     Dates: start: 20170415, end: 2017
  7. BENTYL [Concomitant]
     Active Substance: DICYCLOMINE HYDROCHLORIDE
  8. GEMFIBROZIL. [Concomitant]
     Active Substance: GEMFIBROZIL

REACTIONS (3)
  - Cardiac failure congestive [Recovered/Resolved]
  - Generalised oedema [Recovered/Resolved]
  - Muscle spasms [Recovered/Resolved]

NARRATIVE: CASE EVENT DATE: 201709
